FAERS Safety Report 15464542 (Version 3)
Quarter: 2019Q2

REPORT INFORMATION
  Report Type: Report from Study
  Country: US (occurrence: US)
  Receive Date: 20181004
  Receipt Date: 20190411
  Transmission Date: 20190711
  Serious: Yes (Hospitalization, Other)
  Sender: FDA-Public Use
  Company Number: US-REGENERON PHARMACEUTICALS, INC.-2018-39041

PATIENT

DRUGS (2)
  1. EYLEA [Suspect]
     Active Substance: AFLIBERCEPT
     Indication: DIABETIC RETINOPATHY
     Dosage: 2 MG, 0.05ML, INTO EACH EYE, EVERY 4 WEEKS
     Route: 031
     Dates: start: 20180815
  2. EYLEA [Suspect]
     Active Substance: AFLIBERCEPT
     Indication: DIABETIC RETINAL OEDEMA
     Dosage: 2MG/0.05ML, INTO EACH EYE, EVERY 4 WEEKS, LAST DOSE
     Route: 031
     Dates: start: 201902, end: 201902

REACTIONS (2)
  - Hospitalisation [Not Recovered/Not Resolved]
  - Intentional dose omission [Not Recovered/Not Resolved]
